FAERS Safety Report 5324704-1 (Version None)
Quarter: 2007Q2

REPORT INFORMATION
  Report Type: 
  Country: None (occurrence: None)
  Receive Date: 20070509
  Receipt Date: 20070426
  Transmission Date: 20071010
  Serious: Yes (Death, Hospitalization, Other)
  Sender: FDA-Public Use
  Company Number: A-CH2007-14797

PATIENT
  Age: 58 Year
  Sex: Female
  Weight: 60 kg

DRUGS (11)
  1. TRACLEER [Suspect]
     Indication: PULMONARY HYPERTENSION
     Dosage: SEE IMAGE
     Route: 048
     Dates: start: 20050401, end: 20050515
  2. TRACLEER [Suspect]
     Indication: PULMONARY HYPERTENSION
     Dosage: SEE IMAGE
     Route: 048
     Dates: end: 20070330
  3. TRACLEER [Suspect]
     Indication: PULMONARY HYPERTENSION
     Dosage: SEE IMAGE
     Route: 048
     Dates: start: 20050516
  4. PREDNISOLONE [Concomitant]
  5. IDEOS (CALCIUM CARBONATE, COLECALCIFEROL0 [Concomitant]
  6. OMEPRAZOLE [Concomitant]
  7. TRIAMTERENE AND HYDROCHLOROTHIAZIDE [Concomitant]
  8. ALDACTONE [Concomitant]
  9. TORSEMIDE [Concomitant]
  10. SILDENAFIL CITRATE [Concomitant]
  11. MARCUMAR [Concomitant]

REACTIONS (10)
  - ABSCESS [None]
  - ACUTE ABDOMEN [None]
  - APPENDICITIS PERFORATED [None]
  - CONDITION AGGRAVATED [None]
  - HEPATIC FAILURE [None]
  - MULTI-ORGAN FAILURE [None]
  - PULMONARY HYPERTENSION [None]
  - RESPIRATORY FAILURE [None]
  - RIGHT VENTRICULAR FAILURE [None]
  - SEPSIS [None]
